FAERS Safety Report 6417634-5 (Version None)
Quarter: 2009Q4

REPORT INFORMATION
  Report Type: 
  Country: None (occurrence: None)
  Receive Date: 20091028
  Receipt Date: 20091026
  Transmission Date: 20100525
  Serious: Yes (Other)
  Sender: FDA-Public Use
  Company Number: US-TEVA-213317USA

PATIENT
  Age: 67 Year
  Sex: Female

DRUGS (4)
  1. PAMIDRONATE DISODIUM [Suspect]
     Indication: METASTASES TO BONE
     Dosage: 2 HOUR-EVERY 4 WEEKS-1800MG TOTAL
     Route: 041
     Dates: start: 20050101, end: 20060901
  2. VALSARTAN [Concomitant]
  3. ESOMEPRAZOLE MAGNESIUM [Concomitant]
  4. EXEMESTANE [Concomitant]

REACTIONS (1)
  - FOCAL SEGMENTAL GLOMERULOSCLEROSIS [None]
